FAERS Safety Report 5291993-1 (Version None)
Quarter: 2007Q2

REPORT INFORMATION
  Report Type: 
  Country: None (occurrence: None)
  Receive Date: 20070403
  Receipt Date: 20070320
  Transmission Date: 20071010
  Serious: Yes (Hospitalization)
  Sender: FDA-Public Use
  Company Number: 2007PV032013

PATIENT
  Sex: Male
  Weight: 143.7903 kg

DRUGS (1)
  1. BYETTA [Suspect]
     Indication: DIABETES MELLITUS
     Dosage: 5 MCG; BID; SC
     Route: 058
     Dates: start: 20070103

REACTIONS (4)
  - DECREASED APPETITE [None]
  - HIP SURGERY [None]
  - OSTEONECROSIS [None]
  - WEIGHT INCREASED [None]
